FAERS Safety Report 8463691 (Version 2)
Quarter: 2012Q4

REPORT INFORMATION
  Report Type: Report from Study
  Country: US (occurrence: US)
  Receive Date: 20120316
  Receipt Date: 20121009
  Transmission Date: 20130627
  Serious: Yes (Other)
  Sender: FDA-Public Use
  Company Number: US-ABBOTT-12P-163-0913249-00

PATIENT
  Age: 34 Year
  Sex: Female

DRUGS (2)
  1. HUMIRA [Suspect]
     Indication: CROHN^S DISEASE
  2. HUMIRA [Suspect]

REACTIONS (6)
  - Polyp [Recovered/Resolved]
  - Chronic sinusitis [Not Recovered/Not Resolved]
  - Sinus headache [Recovered/Resolved]
  - Nasal congestion [Recovered/Resolved]
  - Nasal discharge discolouration [Recovered/Resolved]
  - Pain [Recovered/Resolved]
